FAERS Safety Report 9276991 (Version 1)
Quarter: 2013Q2

REPORT INFORMATION
  Report Type: Spontaneous
  Country: IT (occurrence: None)
  Receive Date: 20130501
  Receipt Date: 20130501
  Transmission Date: 20140414
  Serious: Yes (Hospitalization, Other)
  Sender: FDA-Public Use
  Company Number: A-13-110

PATIENT
  Age: 43 Year
  Sex: Female

DRUGS (2)
  1. SALBUTAMOL [Suspect]
     Indication: ASTHMA
  2. SALMETEROL 100 MICROGRAMS [Concomitant]

REACTIONS (1)
  - Cystitis haemorrhagic [None]
